FAERS Safety Report 14726906 (Version 1)
Quarter: 2018Q2

REPORT INFORMATION
  Report Type: Spontaneous
  Country: US (occurrence: US)
  Receive Date: 20180406
  Receipt Date: 20180406
  Transmission Date: 20180711
  Serious: No
  Sender: FDA-Public Use
  Company Number: US-JNJFOC-20180333610

PATIENT
  Sex: Female

DRUGS (1)
  1. ELMIRON [Suspect]
     Active Substance: PENTOSAN POLYSULFATE SODIUM
     Indication: CYSTITIS INTERSTITIAL
     Route: 048
     Dates: start: 2013, end: 201801

REACTIONS (6)
  - Dizziness [Unknown]
  - Drug effect decreased [Unknown]
  - Back pain [Unknown]
  - Asthenia [Unknown]
  - Dyspareunia [Unknown]
  - Abdominal pain upper [Unknown]
